FAERS Safety Report 17286352 (Version 2)
Quarter: 2020Q1

REPORT INFORMATION
  Report Type: Spontaneous
  Country: US (occurrence: US)
  Receive Date: 20200118
  Receipt Date: 20200228
  Transmission Date: 20200409
  Serious: No
  Sender: FDA-Public Use
  Company Number: US-ALEXION PHARMACEUTICALS INC.-A201920070

PATIENT
  Sex: Female

DRUGS (1)
  1. STRENSIQ [Suspect]
     Active Substance: ASFOTASE ALFA
     Indication: HYPOPHOSPHATASIA
     Dosage: 240 MG, TIW
     Route: 058
     Dates: start: 20191217

REACTIONS (8)
  - Fatigue [Unknown]
  - Pain [Unknown]
  - Retching [Unknown]
  - Limb mass [Unknown]
  - Dyspnoea [Recovered/Resolved]
  - Musculoskeletal stiffness [Unknown]
  - Nausea [Unknown]
  - Injection site pain [Unknown]

NARRATIVE: CASE EVENT DATE: 20191217
